FAERS Safety Report 8215914-4 (Version None)
Quarter: 2012Q1

REPORT INFORMATION
  Report Type: 
  Country: None (occurrence: None)
  Receive Date: 20120316
  Receipt Date: 20120308
  Transmission Date: 20120608
  Serious: Yes (Other)
  Sender: FDA-Public Use
  Company Number: US-BAYER-2011-053228

PATIENT
  Age: 38 Year
  Sex: Female
  Weight: 104.76 kg

DRUGS (11)
  1. YAZ [Suspect]
     Indication: CONTRACEPTION
     Dosage: UNK
     Dates: start: 20090101, end: 20090601
  2. YASMIN [Suspect]
     Indication: CONTRACEPTION
     Dosage: UNK
     Dates: start: 20050201, end: 20080101
  3. YAZ [Suspect]
     Indication: MENORRHAGIA
  4. DOXYCYCLINE [Concomitant]
     Indication: BRONCHITIS
     Dosage: 100 MG, UNK
     Route: 048
     Dates: start: 20090531
  5. ADVAIR DISKUS 100/50 [Concomitant]
     Indication: WHEEZING
     Dosage: 1 DF, BID
     Route: 055
     Dates: start: 20090608
  6. YASMIN [Suspect]
     Indication: PREMENSTRUAL SYNDROME
  7. YAZ [Suspect]
     Indication: PREMENSTRUAL SYNDROME
  8. YASMIN [Suspect]
     Indication: MENORRHAGIA
  9. BIAXIN [Concomitant]
     Indication: BRONCHITIS
     Dosage: 500 MG, UNK
     Route: 048
     Dates: start: 20090608
  10. YAZ [Suspect]
  11. YASMIN [Suspect]

REACTIONS (7)
  - PULMONARY EMBOLISM [None]
  - PAIN [None]
  - ANXIETY [None]
  - PSYCHOLOGICAL TRAUMA [None]
  - ANHEDONIA [None]
  - INJURY [None]
  - FEAR [None]
